FAERS Safety Report 26100951 (Version 1)
Quarter: 2025Q4

REPORT INFORMATION
  Report Type: Report from Study
  Country: EU (occurrence: EU)
  Receive Date: 20251128
  Receipt Date: 20251128
  Transmission Date: 20260117
  Serious: Yes (Hospitalization)
  Sender: ABBVIE
  Company Number: EU-ABBVIE-6567184

PATIENT
  Age: 65 Year
  Sex: Male
  Weight: 61 kg

DRUGS (3)
  1. FOSCARBIDOPA\FOSLEVODOPA [Suspect]
     Active Substance: FOSCARBIDOPA\FOSLEVODOPA
     Indication: Parkinson^s disease
     Dosage: DAILY INFUSION 24 HRS, MULTIPLE RATE, ?BASAL RATE: 0.6 ML/H(MORNING AND AFTERNOON) DURATION 12. H...
     Route: 058
     Dates: start: 20251008
  2. FOSCARBIDOPA\FOSLEVODOPA [Suspect]
     Active Substance: FOSCARBIDOPA\FOSLEVODOPA
     Dosage: DAILY INFUSION 24 HRS, MULTIPLE RATE, ?BASAL RATE: 0.48ML/H(MORNING AND AFTERNOON) DURATION 12 HO...
     Route: 058
     Dates: start: 20251020
  3. CARBIDOPA AND LEVODOPA [Concomitant]
     Active Substance: CARBIDOPA\LEVODOPA
     Indication: Parkinson^s disease
     Dosage: CONTINUOUS TREATMENT
     Dates: start: 20251007, end: 20251010

REACTIONS (1)
  - Fall [Recovered/Resolved]

NARRATIVE: CASE EVENT DATE: 20251020
